FAERS Safety Report 19854699 (Version 1)
Quarter: 2021Q3

REPORT INFORMATION
  Report Type: Spontaneous
  Country: US (occurrence: US)
  Receive Date: 20210919
  Receipt Date: 20210919
  Transmission Date: 20211014
  Serious: Yes (Life-Threatening)
  Sender: FDA-Public Use
  Company Number: None

PATIENT
  Age: 63 Year
  Sex: Female
  Weight: 79.8 kg

DRUGS (10)
  1. GUAIFENESIN. [Concomitant]
     Active Substance: GUAIFENESIN
     Dates: start: 20210915
  2. ENOXAPARIN [Concomitant]
     Active Substance: ENOXAPARIN
     Dates: start: 20210915
  3. PANTOPRAZOLE [Concomitant]
     Active Substance: PANTOPRAZOLE
     Dates: start: 20210916
  4. CEFEPIME [Concomitant]
     Active Substance: CEFEPIME HYDROCHLORIDE
     Dates: start: 20210918
  5. DEXAMETHASONE. [Concomitant]
     Active Substance: DEXAMETHASONE
     Dates: start: 20210914, end: 20210914
  6. BARICITINIB. [Suspect]
     Active Substance: BARICITINIB
     Indication: COVID-19 PNEUMONIA
     Route: 048
     Dates: start: 20210914, end: 20210919
  7. METHYLPREDNISOLONE. [Concomitant]
     Active Substance: METHYLPREDNISOLONE
     Dates: start: 20210915, end: 20210917
  8. REMDESIVIR. [Concomitant]
     Active Substance: REMDESIVIR
     Dates: start: 20210914, end: 20210918
  9. DEXAMETHASONE. [Concomitant]
     Active Substance: DEXAMETHASONE
     Dates: start: 20210917
  10. LORATADINE. [Concomitant]
     Active Substance: LORATADINE
     Dates: start: 20210915

REACTIONS (3)
  - Embolism venous [None]
  - Fibrin D dimer increased [None]
  - Oxygen consumption increased [None]

NARRATIVE: CASE EVENT DATE: 20210919
